FAERS Safety Report 23213331 (Version 1)
Quarter: 2023Q4

REPORT INFORMATION
  Report Type: Spontaneous
  Country: US (occurrence: None)
  Receive Date: 20231121
  Receipt Date: 20231121
  Transmission Date: 20240109
  Serious: No
  Sender: FDA-Public Use
  Company Number: None

PATIENT
  Age: 35 Year
  Sex: Female

DRUGS (6)
  1. PAXLOVID [Suspect]
     Active Substance: NIRMATRELVIR\RITONAVIR
  2. DULOXETINE [Concomitant]
     Active Substance: DULOXETINE
  3. FERROUS SULFATE [Concomitant]
     Active Substance: FERROUS SULFATE
  4. HUMIRA [Concomitant]
     Active Substance: ADALIMUMAB
  5. MESALAMINE [Concomitant]
     Active Substance: MESALAMINE
  6. SPIRONOLACTONE [Concomitant]
     Active Substance: SPIRONOLACTONE

REACTIONS (2)
  - COVID-19 [None]
  - SARS-CoV-2 test positive [None]
